FAERS Safety Report 6734117-3 (Version None)
Quarter: 2010Q2

REPORT INFORMATION
  Report Type: 
  Country: None (occurrence: None)
  Receive Date: 20100520
  Receipt Date: 20100517
  Transmission Date: 20101027
  Serious: Yes (Death, Life-Threatening, Hospitalization)
  Sender: FDA-Public Use
  Company Number: GR-BRISTOL-MYERS SQUIBB COMPANY-15079338

PATIENT
  Age: 69 Year
  Sex: Male
  Weight: 52 kg

DRUGS (18)
  1. CISPLATIN [Suspect]
     Indication: NON-SMALL CELL LUNG CANCER STAGE III
     Dosage: 24AUG TO 12OCT09:115MG:50 D 12OCT09 TO ONG: 88MG
     Route: 042
     Dates: start: 20090824
  2. ALIMTA [Suspect]
     Indication: NON-SMALL CELL LUNG CANCER STAGE III
     Dosage: LAST DOSE-12OCT09 24AUG-12OCT09:770 MG (50D) 12OCT09-ONG: 588MG
     Route: 042
     Dates: start: 20090824
  3. RADIATION THERAPY [Suspect]
     Indication: NON-SMALL CELL LUNG CANCER STAGE III
     Dosage: 1DF=6600CGY LAST DOSE-9OCT09
     Route: 065
     Dates: start: 20090824, end: 20091009
  4. FOLIC ACID [Concomitant]
     Dates: start: 20090819, end: 20091113
  5. VITAMIN B-12 [Concomitant]
     Dates: start: 20090819, end: 20091005
  6. DEXAMETHASONE [Concomitant]
     Dates: start: 20090823
  7. RANITIDINE [Concomitant]
     Dates: start: 20091221
  8. OMEPRAZOLE [Concomitant]
     Indication: PROPHYLAXIS
     Dates: start: 20100128
  9. IRON SUCROSE [Concomitant]
     Indication: ANAEMIA
     Dates: start: 20100301
  10. ALUMINIUM HYDROXIDE+MAGNESIUM HYDROXIDE+MANNITOL+SIMETICONE [Concomitant]
     Dates: start: 20100128
  11. SUCRALFATE [Concomitant]
     Indication: APHASIA
     Dates: start: 20100128
  12. IRBESARTAN + HCTZ [Concomitant]
     Indication: HYPERTENSION
  13. MATRIFEN [Concomitant]
     Dates: start: 20091221
  14. PARACETAMOL [Concomitant]
     Dates: start: 20091221
  15. PREGABALIN [Concomitant]
     Indication: PAIN
     Dates: start: 20100114
  16. MIRTAZAPINE [Concomitant]
     Indication: MOOD ALTERED
     Dates: start: 20100301
  17. DARBEPOETIN ALFA [Concomitant]
     Indication: ANAEMIA
     Dates: start: 20100324, end: 20100324
  18. CETIRIZINE HCL [Concomitant]
     Indication: ANAEMIA
     Dates: start: 20091221

REACTIONS (3)
  - GASTRIC PERFORATION [None]
  - PNEUMONIA ASPIRATION [None]
  - TRACHEO-OESOPHAGEAL FISTULA [None]
